FAERS Safety Report 6755689-9 (Version None)
Quarter: 2010Q2

REPORT INFORMATION
  Report Type: 
  Country: None (occurrence: None)
  Receive Date: 20100604
  Receipt Date: 20100601
  Transmission Date: 20101027
  Serious: Yes (Other)
  Sender: FDA-Public Use
  Company Number: US-ASTRAZENECA-2010SE25141

PATIENT
  Sex: Male

DRUGS (2)
  1. CASODEX [Suspect]
     Route: 048
  2. CELEBREX [Interacting]

REACTIONS (3)
  - DRUG INTERACTION [None]
  - TRANSURETHRAL PROSTATECTOMY [None]
  - URINARY RETENTION [None]
